FAERS Safety Report 6328920-1 (Version None)
Quarter: 2009Q3

REPORT INFORMATION
  Report Type: 
  Country: None (occurrence: None)
  Receive Date: 20090826
  Receipt Date: 20090818
  Transmission Date: 20100115
  Serious: Yes (Other)
  Sender: FDA-Public Use
  Company Number: JP-JNJFOC-20090800462

PATIENT
  Sex: Female

DRUGS (7)
  1. LEVOFLOXACIN [Suspect]
     Indication: RESPIRATORY TRACT INFECTION
     Route: 048
  2. LOXONIN [Suspect]
     Indication: PYREXIA
     Dosage: AS NEEDED
     Route: 048
  3. ARTIST [Concomitant]
     Indication: CARDIAC FAILURE
     Route: 048
  4. MAGMITT [Concomitant]
     Indication: CONSTIPATION
     Route: 048
  5. DIART [Concomitant]
     Indication: CARDIAC FAILURE
     Route: 048
  6. ALDACTONE [Concomitant]
     Indication: CARDIAC FAILURE
     Route: 048
  7. LANIRAPID [Concomitant]
     Indication: CARDIAC FAILURE
     Route: 048

REACTIONS (2)
  - CLONIC CONVULSION [None]
  - DEHYDRATION [None]
